FAERS Safety Report 12270323 (Version 4)
Quarter: 2016Q3

REPORT INFORMATION
  Report Type: Report from Study
  Country: CA (occurrence: CA)
  Receive Date: 20160415
  Receipt Date: 20160808
  Transmission Date: 20161109
  Serious: Yes (Hospitalization, Other)
  Sender: FDA-Public Use
  Company Number: PHHY2015CA070031

PATIENT
  Age: 74 Year
  Sex: Male

DRUGS (5)
  1. SANDOSTATIN [Suspect]
     Active Substance: OCTREOTIDE ACETATE
     Dosage: 5 MG, UNK
     Route: 030
     Dates: start: 20150902
  2. SANDOSTATIN [Suspect]
     Active Substance: OCTREOTIDE ACETATE
     Indication: CARCINOID TUMOUR PULMONARY
     Dosage: UNK UG, ONCE/SINGLE
     Route: 058
     Dates: start: 20150605, end: 20150605
  3. SANDOSTATIN LAR DEPOT [Suspect]
     Active Substance: OCTREOTIDE ACETATE
     Indication: CARCINOID TUMOUR PULMONARY
     Dosage: 30 MG, QMO, ONCE A MONTH
     Route: 030
     Dates: start: 20150902
  4. ATENOLOL. [Concomitant]
     Active Substance: ATENOLOL
     Indication: PRODUCT USED FOR UNKNOWN INDICATION
     Route: 065
  5. SANDOSTATIN [Suspect]
     Active Substance: OCTREOTIDE ACETATE
     Dosage: 450 UG, ONCE/SINGLE (TEST DOSE)
     Route: 058
     Dates: start: 20150902, end: 20150902

REACTIONS (22)
  - Bradycardia [Unknown]
  - Headache [Recovering/Resolving]
  - Needle issue [Unknown]
  - Rash [Unknown]
  - Dizziness [Recovering/Resolving]
  - Injection site inflammation [Recovering/Resolving]
  - Injection site pain [Recovering/Resolving]
  - Injection site mass [Unknown]
  - Incorrect dose administered [Unknown]
  - Hypokinesia [Unknown]
  - Incorrect route of drug administration [Unknown]
  - Bone cancer [Unknown]
  - Peripheral swelling [Unknown]
  - Injection site erythema [Unknown]
  - Product use issue [Unknown]
  - Blood pressure systolic increased [Unknown]
  - Injection site reaction [Recovering/Resolving]
  - Tremor [Recovering/Resolving]
  - Fatigue [Unknown]
  - Sinus disorder [Unknown]
  - Erythema [Unknown]
  - Injection site nerve damage [Unknown]

NARRATIVE: CASE EVENT DATE: 20150605
